FAERS Safety Report 6078016-1 (Version None)
Quarter: 2009Q1

REPORT INFORMATION
  Report Type: 
  Country: None (occurrence: None)
  Receive Date: 20090213
  Receipt Date: 20090204
  Transmission Date: 20090719
  Serious: Yes (Hospitalization)
  Sender: FDA-Public Use
  Company Number: SE-PFIZER INC-2009167795

PATIENT

DRUGS (4)
  1. CHAMPIX [Suspect]
     Indication: PROPHYLAXIS
     Dosage: 0.5 MG, UNK
     Route: 048
     Dates: start: 20090108, end: 20090108
  2. SERETIDE DISKUS [Concomitant]
     Dosage: UNK
  3. ENALAPRIL [Concomitant]
     Dosage: UNK
  4. PLENDIL [Concomitant]
     Dosage: UNK

REACTIONS (1)
  - ANGIOEDEMA [None]
